FAERS Safety Report 5843687-9 (Version None)
Quarter: 2008Q3

REPORT INFORMATION
  Report Type: 
  Country: None (occurrence: None)
  Receive Date: 20080808
  Receipt Date: 20080728
  Transmission Date: 20090109
  Serious: Yes (Life-Threatening, Hospitalization)
  Sender: FDA-Public Use
  Company Number: 100#03#2008-03840

PATIENT
  Age: 55 Year
  Sex: Male

DRUGS (7)
  1. DIAZEPAM [Suspect]
     Indication: DRUG USE FOR UNKNOWN INDICATION
  2. DICLOFENAC SODIUM [Suspect]
     Indication: DRUG USE FOR UNKNOWN INDICATION
  3. LANSOPRAZOLE [Suspect]
     Indication: DRUG USE FOR UNKNOWN INDICATION
  4. RAMIPRIL [Suspect]
     Indication: DRUG USE FOR UNKNOWN INDICATION
  5. ROSUVASTATIN (ROSUVASTATIN) [Suspect]
     Indication: DRUG USE FOR UNKNOWN INDICATION
  6. LEVEMIR [Suspect]
     Indication: DRUG USE FOR UNKNOWN INDICATION
  7. NOVORAPID (INSULIN ASPART) [Suspect]
     Indication: DRUG USE FOR UNKNOWN INDICATION

REACTIONS (7)
  - CONDITION AGGRAVATED [None]
  - DRUG ERUPTION [None]
  - GENERAL PHYSICAL HEALTH DETERIORATION [None]
  - HERPES ZOSTER DISSEMINATED [None]
  - RENAL IMPAIRMENT [None]
  - SEPSIS [None]
  - TOXIC EPIDERMAL NECROLYSIS [None]
